FAERS Safety Report 21530690 (Version 4)
Quarter: 2022Q4

REPORT INFORMATION
  Report Type: Report from Study
  Country: US (occurrence: US)
  Receive Date: 20221031
  Receipt Date: 20221205
  Transmission Date: 20230113
  Serious: Yes (Hospitalization, Other)
  Sender: FDA-Public Use
  Company Number: US-JAZZ-2022-US-033822

PATIENT
  Sex: Male

DRUGS (10)
  1. XYREM [Suspect]
     Active Substance: SODIUM OXYBATE
     Indication: Narcolepsy
     Dosage: UNK
  2. XYREM [Suspect]
     Active Substance: SODIUM OXYBATE
     Indication: Cataplexy
  3. XYREM [Suspect]
     Active Substance: SODIUM OXYBATE
     Indication: Somnolence
  4. WELLBUTRIN [Suspect]
     Active Substance: BUPROPION HYDROCHLORIDE
     Indication: Product used for unknown indication
     Dosage: UNK
  5. ADDERALL [Suspect]
     Active Substance: AMPHETAMINE ASPARTATE\AMPHETAMINE SULFATE\DEXTROAMPHETAMINE SACCHARATE\DEXTROAMPHETAMINE SULFATE
     Indication: Product used for unknown indication
     Dosage: UNK
  6. GABAPENTIN [Suspect]
     Active Substance: GABAPENTIN
     Indication: Headache
     Dosage: UNK
  7. GABAPENTIN [Suspect]
     Active Substance: GABAPENTIN
     Indication: Anxiety
  8. TRAZODONE [Concomitant]
     Active Substance: TRAZODONE HYDROCHLORIDE
  9. ALPRAZOLAM [Concomitant]
     Active Substance: ALPRAZOLAM
  10. ZANAFLEX [Concomitant]
     Active Substance: TIZANIDINE HYDROCHLORIDE

REACTIONS (11)
  - Thermal burn [Unknown]
  - Concussion [Unknown]
  - Dehydration [Unknown]
  - Sinus operation [Unknown]
  - Surgery [Unknown]
  - Peripheral swelling [Unknown]
  - Paranoia [Unknown]
  - Headache [Unknown]
  - Anxiety [Unknown]
  - Hyperhidrosis [Unknown]
  - Therapeutic response changed [Unknown]
